FAERS Safety Report 5753560-2 (Version None)
Quarter: 2008Q2

REPORT INFORMATION
  Report Type: 
  Country: None (occurrence: None)
  Receive Date: 20080530
  Receipt Date: 20080520
  Transmission Date: 20081010
  Serious: Yes (Life-Threatening, Hospitalization)
  Sender: FDA-Public Use
  Company Number: US-WYE-H04176108

PATIENT
  Age: 53 Year
  Sex: Female

DRUGS (5)
  1. VENLAFAXINE HYDROCHLORIDE [Suspect]
  2. AMFEBUTAMONE [Concomitant]
     Indication: DEPRESSION
  3. OLANZAPINE [Interacting]
  4. FLUOXETINE HCL [Interacting]
  5. METHADONE HCL [Interacting]

REACTIONS (4)
  - DRUG INTERACTION [None]
  - DYSARTHRIA [None]
  - GAIT DISTURBANCE [None]
  - SEROTONIN SYNDROME [None]
